FAERS Safety Report 5071749-5 (Version None)
Quarter: 2006Q3

REPORT INFORMATION
  Report Type: 
  Country: None (occurrence: None)
  Receive Date: 20060804
  Receipt Date: 20060717
  Transmission Date: 20061208
  Serious: Yes (Hospitalization, Other)
  Sender: FDA-Public Use
  Company Number: US-BRISTOL-MYERS SQUIBB COMPANY-13444476

PATIENT
  Age: 18 Year
  Sex: Male

DRUGS (3)
  1. ABILIFY [Suspect]
     Indication: BIPOLAR DISORDER
     Dates: start: 20051222
  2. STRATTERA [Concomitant]
  3. LEXAPRO [Concomitant]

REACTIONS (3)
  - CARDIAC DISORDER [None]
  - HOMICIDE [None]
  - INTENTIONAL OVERDOSE [None]
